FAERS Safety Report 6890177-0 (Version None)
Quarter: 2010Q3

REPORT INFORMATION
  Report Type: 
  Country: None (occurrence: None)
  Receive Date: 20100730
  Receipt Date: 20080820
  Transmission Date: 20110219
  Serious: No
  Sender: FDA-Public Use
  Company Number: US-PFIZER INC-2008070324

PATIENT
  Age: 78 Year
  Sex: Female

DRUGS (3)
  1. LIPITOR [Suspect]
  2. ZOLOFT [Concomitant]
  3. MICARDIS [Concomitant]

REACTIONS (1)
  - DIARRHOEA [None]
